FAERS Safety Report 7193961-1 (Version None)
Quarter: 2010Q4

REPORT INFORMATION
  Report Type: 
  Country: None (occurrence: None)
  Receive Date: 20101223
  Receipt Date: 20101222
  Transmission Date: 20110411
  Serious: Yes (Life-Threatening)
  Sender: FDA-Public Use
  Company Number: DE-TEVA-260753GER

PATIENT
  Sex: Female

DRUGS (1)
  1. PACLITAXEL GRY 300MG [Suspect]

REACTIONS (1)
  - APNOEA [None]
